FAERS Safety Report 7035644-4 (Version None)
Quarter: 2010Q4

REPORT INFORMATION
  Report Type: 
  Country: None (occurrence: None)
  Receive Date: 20101007
  Receipt Date: 20101007
  Transmission Date: 20110411
  Serious: Yes (Hospitalization)
  Sender: FDA-Public Use
  Company Number: None

PATIENT
  Sex: Female
  Weight: 54.9 kg

DRUGS (2)
  1. CISPLATIN [Suspect]
     Dosage: 117 MG
     Dates: end: 20100907
  2. ETOPOSIDE [Suspect]
     Dosage: 468 MG
     Dates: end: 20100910

REACTIONS (6)
  - ANAEMIA [None]
  - CHONDROCALCINOSIS PYROPHOSPHATE [None]
  - CONSTIPATION [None]
  - FALL [None]
  - HUMERUS FRACTURE [None]
  - NEUTROPHIL COUNT DECREASED [None]
